FAERS Safety Report 8178749-7 (Version None)
Quarter: 2012Q1

REPORT INFORMATION
  Report Type: 
  Country: None (occurrence: None)
  Receive Date: 20120301
  Receipt Date: 20120301
  Transmission Date: 20120608
  Serious: Yes (Other)
  Sender: FDA-Public Use
  Company Number: None

PATIENT
  Sex: Female
  Weight: 86.182 kg

DRUGS (1)
  1. CIPRO [Suspect]
     Indication: URINARY TRACT INFECTION
     Dosage: 250 MG
     Route: 048
     Dates: start: 20120208, end: 20120212

REACTIONS (8)
  - BACK PAIN [None]
  - PAIN IN EXTREMITY [None]
  - NERVOUS SYSTEM DISORDER [None]
  - BURNING SENSATION [None]
  - DYSURIA [None]
  - ARTHRALGIA [None]
  - INSOMNIA [None]
  - PRURITUS [None]
